FAERS Safety Report 5154577-1 (Version None)
Quarter: 2006Q4

REPORT INFORMATION
  Report Type: 
  Country: None (occurrence: None)
  Receive Date: 20061114
  Receipt Date: 20061027
  Transmission Date: 20070319
  Serious: Yes (Hospitalization)
  Sender: FDA-Public Use
  Company Number: A-CH2006-13133

PATIENT
  Sex: Female

DRUGS (4)
  1. TRACLEER [Suspect]
     Indication: PULMONARY HYPERTENSION
     Dosage: 125 MG, OD; ORAL; 62.5MG, OD; ORAL
     Route: 048
     Dates: end: 20060801
  2. TRACLEER [Suspect]
     Indication: PULMONARY HYPERTENSION
     Dosage: 125 MG, OD; ORAL; 62.5MG, OD; ORAL
     Route: 048
     Dates: end: 20060824
  3. MARCUMAR [Concomitant]
  4. BETA BLOCKING AGENTS [Concomitant]

REACTIONS (3)
  - JAUNDICE [None]
  - LIVER FUNCTION TEST ABNORMAL [None]
  - OEDEMA [None]
